FAERS Safety Report 4592951-2 (Version None)
Quarter: 2005Q1

REPORT INFORMATION
  Report Type: 
  Country: None (occurrence: None)
  Receive Date: 20050228
  Receipt Date: 20050221
  Transmission Date: 20050727
  Serious: Yes (Disabling)
  Sender: FDA-Public Use
  Company Number: NL-GLAXOSMITHKLINE-B0372948A

PATIENT
  Age: 83 Year
  Sex: Female

DRUGS (1)
  1. RANITIDINE HYDROCHLORIDE [Suspect]
     Route: 065
     Dates: start: 20010101, end: 20010501

REACTIONS (2)
  - MYALGIA [None]
  - URTICARIA [None]
